FAERS Safety Report 9619267 (Version 1)
Quarter: 2013Q4

REPORT INFORMATION
  Report Type: Spontaneous
  Country: US (occurrence: US)
  Receive Date: 20131014
  Receipt Date: 20131014
  Transmission Date: 20140711
  Serious: Yes (Other)
  Sender: FDA-Public Use
  Company Number: US-PFIZER INC-2013290157

PATIENT
  Sex: Female
  Weight: 57.14 kg

DRUGS (1)
  1. VFEND [Suspect]
     Indication: ASPERGILLUS INFECTION
     Dosage: 200 MG, 2X/DAY
     Route: 048
     Dates: start: 20101202, end: 201102

REACTIONS (4)
  - Gallbladder disorder [Unknown]
  - Pancreatic disorder [Unknown]
  - Jaundice [Unknown]
  - Pancreatitis [Unknown]
